FAERS Safety Report 4681201-4 (Version None)
Quarter: 2005Q2

REPORT INFORMATION
  Report Type: 
  Country: None (occurrence: None)
  Receive Date: 20050603
  Receipt Date: 20040907
  Transmission Date: 20051028
  Serious: Yes (Hospitalization)
  Sender: FDA-Public Use
  Company Number: US-ROCHE-379945

PATIENT
  Age: 45 Year
  Sex: Male
  Weight: 81.6 kg

DRUGS (11)
  1. PEGASYS [Suspect]
     Indication: HEPATITIS C
     Route: 058
     Dates: start: 20040604, end: 20050315
  2. PEGASYS [Suspect]
     Dosage: REINTRODUCED AFTER ONE WEEK OF DISCONTINUATION.
     Route: 058
     Dates: start: 20050306
  3. COPEGUS [Suspect]
     Indication: HEPATITIS C
     Route: 048
     Dates: start: 20040604, end: 20050315
  4. COPEGUS [Suspect]
     Route: 048
     Dates: start: 20050315
  5. PROCRIT [Suspect]
     Indication: ANAEMIA
     Route: 058
     Dates: start: 20040615
  6. PERCOCET [Concomitant]
     Route: 048
  7. LEXAPRO [Concomitant]
     Route: 048
  8. ANTIHYPERTENSIVE [Concomitant]
     Indication: HYPERTENSION
     Dosage: INCREASED ON AN UNKNOWN DATE.
     Route: 048
  9. MUSCLE RELAXANT NOS [Concomitant]
     Indication: BACK DISORDER
  10. UNSPECIFIED DRUG [Concomitant]
     Dosage: NERVE BLOCKS.
  11. UNSPECIFIED DRUG [Concomitant]
     Dosage: FACET INJECTION.

REACTIONS (34)
  - ABDOMINAL PAIN [None]
  - AGITATION [None]
  - ANAEMIA [None]
  - ARTHRALGIA [None]
  - BACK PAIN [None]
  - BLOOD THYROID STIMULATING HORMONE ABNORMAL [None]
  - BLOOD THYROID STIMULATING HORMONE DECREASED [None]
  - CHEST PAIN [None]
  - CONTUSION [None]
  - DEPRESSION [None]
  - DIARRHOEA [None]
  - DIZZINESS [None]
  - HEADACHE [None]
  - HEPATIC PAIN [None]
  - HYPERHIDROSIS [None]
  - HYPOTENSION [None]
  - INCREASED TENDENCY TO BRUISE [None]
  - INSOMNIA [None]
  - LOSS OF CONSCIOUSNESS [None]
  - MYALGIA [None]
  - NEPHRITIS [None]
  - NEUTROPENIA [None]
  - OEDEMA PERIPHERAL [None]
  - PANIC ATTACK [None]
  - PELVIC MASS [None]
  - PLATELET COUNT DECREASED [None]
  - RASH [None]
  - RENAL DISORDER [None]
  - SUICIDAL IDEATION [None]
  - SWELLING [None]
  - SYNCOPE [None]
  - THROMBOSIS [None]
  - WEIGHT DECREASED [None]
  - WHITE BLOOD CELL COUNT DECREASED [None]
